FAERS Safety Report 12003168 (Version 6)
Quarter: 2016Q4

REPORT INFORMATION
  Report Type: Spontaneous
  Country: US (occurrence: US)
  Receive Date: 20160204
  Receipt Date: 20161104
  Transmission Date: 20170206
  Serious: No
  Sender: FDA-Public Use
  Company Number: US-PFIZER INC-2016060725

PATIENT
  Age: 78 Year
  Sex: Female
  Weight: 54.42 kg

DRUGS (3)
  1. IBRANCE [Suspect]
     Active Substance: PALBOCICLIB
     Indication: BREAST CANCER METASTATIC
     Dosage: 125 MG, CYCLIC (DAILY 21 OUT OF 28 DAY)
     Route: 048
     Dates: start: 20150729, end: 20161101
  2. IBRANCE [Suspect]
     Active Substance: PALBOCICLIB
     Dosage: UNK
  3. IBRANCE [Suspect]
     Active Substance: PALBOCICLIB
     Dosage: UNK

REACTIONS (9)
  - Neuropathy peripheral [Unknown]
  - White blood cell count decreased [Unknown]
  - Cough [Unknown]
  - Decreased appetite [Recovering/Resolving]
  - Laboratory test abnormal [Unknown]
  - Red blood cell count decreased [Unknown]
  - Stomatitis [Not Recovered/Not Resolved]
  - Weight decreased [Recovered/Resolved]
  - Alopecia [Unknown]
